FAERS Safety Report 4713719-X (Version None)
Quarter: 2005Q3

REPORT INFORMATION
  Report Type: 
  Country: None (occurrence: None)
  Receive Date: 20050712
  Receipt Date: 20050630
  Transmission Date: 20060218
  Serious: No
  Sender: FDA-Public Use
  Company Number: 215778

PATIENT
  Age: 14 Year
  Sex: Male
  Weight: 22 kg

DRUGS (1)
  1. NUTROPIN AQ [Suspect]
     Indication: GROWTH HORMONE DEFICIENCY
     Dosage: 4 MG, QD, SUBCUTANEOUS
     Route: 058
     Dates: start: 20030624

REACTIONS (2)
  - ANKLE FRACTURE [None]
  - FALL [None]
